FAERS Safety Report 8594799-0 (Version None)
Quarter: 2012Q3

REPORT INFORMATION
  Report Type: 
  Country: None (occurrence: None)
  Receive Date: 20120801
  Receipt Date: 20120717
  Transmission Date: 20120928
  Serious: Yes (Death)
  Sender: FDA-Public Use
  Company Number: 2012MA008186

PATIENT
  Age: 78 Year
  Sex: Male

DRUGS (8)
  1. DICLOFENAC SODIUM [Suspect]
     Indication: PAIN
     Dosage: 50 MG;TID;PO
     Route: 048
     Dates: start: 20120530
  2. DILTIAZEM HCL [Concomitant]
  3. AZITROMYCINE APOTEX [Concomitant]
  4. OMEPRAZOL ACTAVIS [Concomitant]
  5. LOSARTAN KALIUM [Concomitant]
  6. .. [Concomitant]
  7. CRESTOR [Concomitant]
  8. ACETYLSALICYLZUUR CARDIO [Concomitant]

REACTIONS (3)
  - PULMONARY HAEMORRHAGE [None]
  - THROMBOCYTOPENIA [None]
  - DYSPNOEA [None]
